FAERS Safety Report 25131900 (Version 1)
Quarter: 2025Q1

REPORT INFORMATION
  Report Type: Report from Study
  Country: US (occurrence: US)
  Receive Date: 20250327
  Receipt Date: 20250327
  Transmission Date: 20250408
  Serious: Yes (Other)
  Sender: ABBVIE
  Company Number: US-ABBVIE-6122285

PATIENT
  Sex: Male

DRUGS (1)
  1. SKYRIZI [Suspect]
     Active Substance: RISANKIZUMAB-RZAA
     Indication: Psoriasis
     Route: 058
     Dates: start: 20230122

REACTIONS (4)
  - Bladder cancer [Unknown]
  - Nephrolithiasis [Unknown]
  - Renal cyst [Unknown]
  - Urinary bladder polyp [Unknown]

NARRATIVE: CASE EVENT DATE: 20230101
